FAERS Safety Report 10533483 (Version 2)
Quarter: 2014Q4

REPORT INFORMATION
  Report Type: Spontaneous
  Country: CN (occurrence: CN)
  Receive Date: 20141022
  Receipt Date: 20141022
  Transmission Date: 20150529
  Serious: No
  Sender: FDA-Public Use
  Company Number: PHHY2014CN060887

PATIENT

DRUGS (3)
  1. TASIGNA [Suspect]
     Active Substance: NILOTINIB
     Indication: GASTROINTESTINAL NEOPLASM
     Dosage: 2 DF (DOSE REDUCED TO 2 TABLET)
     Route: 048
     Dates: start: 20140501, end: 20140515
  2. TASIGNA [Suspect]
     Active Substance: NILOTINIB
     Indication: GASTROINTESTINAL STROMAL TUMOUR
     Route: 048
  3. TASIGNA [Suspect]
     Active Substance: NILOTINIB
     Indication: OFF LABEL USE

REACTIONS (5)
  - Blood creatine phosphokinase increased [Unknown]
  - Hyperbilirubinaemia [Unknown]
  - Oedema [Unknown]
  - Blood alkaline phosphatase decreased [Unknown]
  - Malaise [Unknown]

NARRATIVE: CASE EVENT DATE: 20140604
